FAERS Safety Report 6922185-5 (Version None)
Quarter: 2010Q3

REPORT INFORMATION
  Report Type: 
  Country: None (occurrence: None)
  Receive Date: 20100812
  Receipt Date: 20100804
  Transmission Date: 20110219
  Serious: Yes (Hospitalization)
  Sender: FDA-Public Use
  Company Number: US-AMGEN-QUU429231

PATIENT
  Sex: Female

DRUGS (2)
  1. ENBREL [Suspect]
     Indication: PSORIATIC ARTHROPATHY
     Route: 058
     Dates: start: 20031001, end: 20100613
  2. ENBREL [Suspect]
     Indication: PSORIASIS

REACTIONS (4)
  - IMPAIRED GASTRIC EMPTYING [None]
  - ONYCHOCLASIS [None]
  - PAIN IN EXTREMITY [None]
  - SMALL INTESTINAL OBSTRUCTION [None]
